FAERS Safety Report 7987086-2 (Version None)
Quarter: 2011Q4

REPORT INFORMATION
  Report Type: 
  Country: None (occurrence: None)
  Receive Date: 20111216
  Receipt Date: 20110929
  Transmission Date: 20120403
  Serious: No
  Sender: FDA-Public Use
  Company Number: US-BRISTOL-MYERS SQUIBB COMPANY-16115735

PATIENT
  Age: 9 Year

DRUGS (1)
  1. ABILIFY [Suspect]
     Dosage: 1 DF=20 MG INSTEAD OF 2MG

REACTIONS (4)
  - SEDATION [None]
  - DROOLING [None]
  - DRUG DISPENSING ERROR [None]
  - OROPHARYNGEAL PAIN [None]
